FAERS Safety Report 7514505-8 (Version None)
Quarter: 2011Q2

REPORT INFORMATION
  Report Type: 
  Country: None (occurrence: None)
  Receive Date: 20110601
  Receipt Date: 20101129
  Transmission Date: 20111010
  Serious: No
  Sender: FDA-Public Use
  Company Number: US-BAYER-2010-004411

PATIENT
  Age: 86 Year
  Sex: Female
  Weight: 47.619 kg

DRUGS (6)
  1. ULTRAVIST 150 [Suspect]
     Indication: HAEMATURIA
  2. ULTRAVIST 150 [Suspect]
     Indication: URINARY TRACT INFECTION
  3. PRAVACHOL [Concomitant]
     Indication: PRODUCT USED FOR UNKNOWN INDICATION
     Dosage: UNK
  4. ULTRAVIST 150 [Suspect]
     Indication: DIAGNOSTIC PROCEDURE
     Dosage: 200 ML, ONCE
     Route: 042
     Dates: start: 20101129, end: 20101129
  5. VASOTEC [Concomitant]
     Indication: PRODUCT USED FOR UNKNOWN INDICATION
     Dosage: UNK
  6. ULTRAVIST 150 [Suspect]
     Indication: PELVIC PAIN

REACTIONS (2)
  - PRURITUS [None]
  - URTICARIA [None]
